FAERS Safety Report 4879922-3 (Version None)
Quarter: 2006Q1

REPORT INFORMATION
  Report Type: 
  Country: None (occurrence: None)
  Receive Date: 20060113
  Receipt Date: 20051021
  Transmission Date: 20060701
  Serious: Yes (Hospitalization, Other)
  Sender: FDA-Public Use
  Company Number: US-MERCK-0510USA08736

PATIENT
  Age: 61 Year
  Sex: Male

DRUGS (1)
  1. VIOXX [Suspect]
     Route: 048
     Dates: start: 20010927, end: 20040619

REACTIONS (7)
  - INSOMNIA [None]
  - MYOCARDIAL INFARCTION [None]
  - OSTEONECROSIS [None]
  - POSTPERICARDIOTOMY SYNDROME [None]
  - REPERFUSION ARRHYTHMIA [None]
  - URINARY TRACT DISORDER [None]
  - WEIGHT DECREASED [None]
